FAERS Safety Report 19728388 (Version 7)
Quarter: 2021Q4

REPORT INFORMATION
  Report Type: Spontaneous
  Country: ES (occurrence: ES)
  Receive Date: 20210820
  Receipt Date: 20211105
  Transmission Date: 20220303
  Serious: Yes (Disabling)
  Sender: FDA-Public Use
  Company Number: ES-MLMSERVICE-20210813-3047015-1

PATIENT
  Age: 58 Year
  Sex: Male

DRUGS (3)
  1. BETAMETHASONE DIPROPIONATE\BETAMETHASONE SODIUM PHOSPHATE [Suspect]
     Active Substance: BETAMETHASONE DIPROPIONATE\BETAMETHASONE SODIUM PHOSPHATE
     Indication: Lumbar spinal stenosis
     Dosage: INJECTION OF 4 MILLILITER (ML) (ONE DOSE)
     Route: 008
  2. BETAMETHASONE DIPROPIONATE\BETAMETHASONE SODIUM PHOSPHATE [Suspect]
     Active Substance: BETAMETHASONE DIPROPIONATE\BETAMETHASONE SODIUM PHOSPHATE
     Indication: Intervertebral disc protrusion
  3. BUPIVACAINE [Suspect]
     Active Substance: BUPIVACAINE
     Dosage: 5 MILLILITER (ML)

REACTIONS (3)
  - Hiccups [Recovered/Resolved]
  - Insomnia [Recovered/Resolved]
  - Incorrect route of product administration [Unknown]
